FAERS Safety Report 7741612-7 (Version None)
Quarter: 2011Q3

REPORT INFORMATION
  Report Type: 
  Country: None (occurrence: None)
  Receive Date: 20110909
  Receipt Date: 20110831
  Transmission Date: 20111222
  Serious: Yes (Hospitalization, Other)
  Sender: FDA-Public Use
  Company Number: US-ASTRAZENECA-2011SE52550

PATIENT
  Sex: Male

DRUGS (17)
  1. DUETACT [Concomitant]
     Dosage: 30MG/2MG, 1 DAILY
     Route: 048
  2. NEURONTIN [Concomitant]
     Route: 048
  3. NITROGLYCERIN [Concomitant]
     Indication: CHEST PAIN
     Dosage: 0.4 MG EVERY 5 MINUTES, MAY REPEAT 3 TIMES
     Route: 060
  4. AMIODARONE HCL [Concomitant]
     Route: 048
  5. LACTULOSE [Concomitant]
     Dosage: 10 GM/15ML, 30 ML EVERY 12 HOURS
     Route: 048
  6. LASIX [Concomitant]
     Dosage: 20 MG, 1-2 EVERYDAY AS NEEDED
     Route: 048
  7. CRESTOR [Suspect]
     Dosage: MONDAY, WEDNESDAY AND FRIDAY
     Route: 048
  8. SIMVASTATIN [Concomitant]
     Route: 048
  9. ZETIA [Concomitant]
     Route: 048
  10. SENNA [Concomitant]
  11. PLAVIX [Concomitant]
     Route: 048
  12. VITAMIN D2 [Concomitant]
     Route: 048
     Dates: start: 20110520
  13. JANUVIA [Concomitant]
     Route: 048
  14. PROTONIX [Concomitant]
     Route: 048
  15. RANITIDINE [Concomitant]
     Route: 048
  16. LANOXIN [Concomitant]
     Route: 048
  17. COREG [Concomitant]
     Route: 048

REACTIONS (20)
  - DIABETIC VASCULAR DISORDER [None]
  - PERIPHERAL VASCULAR DISORDER [None]
  - DIABETES MELLITUS INADEQUATE CONTROL [None]
  - LUMBAR SPINAL STENOSIS [None]
  - HERNIA [None]
  - ABDOMINAL PAIN [None]
  - MYOCARDIAL ISCHAEMIA [None]
  - ALCOHOLISM [None]
  - HYPERLIPIDAEMIA [None]
  - INTERVERTEBRAL DISC PROTRUSION [None]
  - INAPPROPRIATE SCHEDULE OF DRUG ADMINISTRATION [None]
  - CAROTID ARTERY STENOSIS [None]
  - HYPERTENSIVE HEART DISEASE [None]
  - RENAL FAILURE CHRONIC [None]
  - THERMAL BURN [None]
  - DEPRESSION [None]
  - ATRIAL FIBRILLATION [None]
  - CARDIAC FAILURE [None]
  - ROTATOR CUFF SYNDROME [None]
  - RADICULITIS [None]
